FAERS Safety Report 9168055 (Version 2)
Quarter: 2013Q2

REPORT INFORMATION
  Report Type: Spontaneous
  Country: JP (occurrence: None)
  Receive Date: 20130307
  Receipt Date: 20130521
  Transmission Date: 20140414
  Serious: Yes (Life-Threatening, Hospitalization)
  Sender: FDA-Public Use
  Company Number: TCI2013A01200

PATIENT
  Age: 65 Year
  Sex: Female

DRUGS (10)
  1. ACTOS [Suspect]
     Indication: DIABETES MELLITUS
     Dosage: 15 MG, 1 IN 1 D
     Route: 048
     Dates: start: 2009
  2. BLOPRESS TABLETS 8 (CANDESARTAN CILEXETIL) [Concomitant]
  3. AMARYL (GLIMEPIRIDE) [Concomitant]
  4. GLACTIV (SITAGLIPTIN PHOSPHATE MONOHYDRATE) [Concomitant]
  5. NELBIS (METFORMIN HYDROCHLORIDE) [Concomitant]
  6. FLUITRAN (TRICHLORMETHIAZIDE) [Concomitant]
  7. ADALAT L (NIFEDIPINE) [Concomitant]
  8. LIVALO (PITAVASTATIN CALCIUM) [Concomitant]
  9. GASTER (FAMOTIDINE) [Concomitant]
  10. MEBUTIT (TRIMEBUTINE MALEATE) [Concomitant]

REACTIONS (4)
  - Cushing^s syndrome [None]
  - Diabetes mellitus inadequate control [None]
  - Adrenal gland cancer [None]
  - Generalised oedema [None]
